FAERS Safety Report 20109509 (Version 1)
Quarter: 2021Q4

REPORT INFORMATION
  Report Type: Spontaneous
  Country: US (occurrence: None)
  Receive Date: 20211124
  Receipt Date: 20211124
  Transmission Date: 20220303
  Serious: Yes (Hospitalization)
  Sender: FDA-Public Use
  Company Number: US-FRESENIUS KABI-FK202113009

PATIENT
  Age: 69 Year
  Sex: Male

DRUGS (2)
  1. LINEZOLID [Suspect]
     Active Substance: LINEZOLID
     Indication: Osteomyelitis
     Dosage: 6-WEEK COURSE
     Route: 065
  2. LINEZOLID [Suspect]
     Active Substance: LINEZOLID
     Indication: Staphylococcal bacteraemia

REACTIONS (4)
  - Alopecia [Recovered/Resolved]
  - Toxicity to various agents [Recovered/Resolved]
  - Bicytopenia [Recovered/Resolved]
  - Diarrhoea [Recovered/Resolved]
